FAERS Safety Report 15955447 (Version 3)
Quarter: 2019Q1

REPORT INFORMATION
  Report Type: Spontaneous
  Country: US (occurrence: US)
  Receive Date: 20190213
  Receipt Date: 20190219
  Transmission Date: 20190417
  Serious: Yes (Other)
  Sender: FDA-Public Use
  Company Number: US-PFIZER INC-2019055607

PATIENT
  Age: 54 Year
  Sex: Female
  Weight: 95.69 kg

DRUGS (1)
  1. LIOTHYRONINE SODIUM. [Suspect]
     Active Substance: LIOTHYRONINE SODIUM
     Dosage: 25 UG, UNK
     Dates: start: 2014

REACTIONS (3)
  - Drug hypersensitivity [Unknown]
  - Pharyngeal oedema [Unknown]
  - Throat tightness [Unknown]

NARRATIVE: CASE EVENT DATE: 2015
